FAERS Safety Report 8296999 (Version 2)
Quarter: 2012Q4

REPORT INFORMATION
  Report Type: 
  Country: US (occurrence: US)
  Receive Date: 20111216
  Receipt Date: 20121218
  Transmission Date: 20130627
  Serious: Yes (Other)
  Sender: FDA-Public Use
  Company Number: US-BRISTOL-MYERS SQUIBB COMPANY-15419302

PATIENT
  Age: 15 Year
  Sex: Male

DRUGS (2)
  1. ABILIFY [Suspect]
     Indication: MOOD SWINGS
     Route: 048
     Dates: start: 20070820, end: 20081001
  2. RISPERIDONE [Suspect]
     Dates: start: 20050302, end: 20070820

REACTIONS (2)
  - Weight increased [Recovered/Resolved]
  - Weight decreased [Unknown]
